FAERS Safety Report 12711904 (Version 1)
Quarter: 2016Q3

REPORT INFORMATION
  Report Type: Spontaneous
  Country: US (occurrence: US)
  Receive Date: 20160902
  Receipt Date: 20160902
  Transmission Date: 20161109
  Serious: No
  Sender: FDA-Public Use
  Company Number: US-PFIZER INC-2016400195

PATIENT
  Age: 53 Year
  Sex: Female
  Weight: 80.74 kg

DRUGS (4)
  1. EPLERENONE. [Suspect]
     Active Substance: EPLERENONE
     Indication: BLOOD ALDOSTERONE INCREASED
     Dosage: 25 MG, 1X/DAY
     Dates: start: 201601, end: 20160822
  2. EPLERENONE. [Suspect]
     Active Substance: EPLERENONE
     Indication: HYPERTENSION
  3. T3 [Concomitant]
     Active Substance: LIOTHYRONINE SODIUM
     Dosage: 25 MG, 1X/DAY
  4. SYNTHROID [Concomitant]
     Active Substance: LEVOTHYROXINE SODIUM
     Indication: BLOOD THYROID STIMULATING HORMONE DECREASED
     Dosage: 100MG ONE DAY AND 50MG THE NEXT, ALTERNATE DAY

REACTIONS (1)
  - Weight increased [Not Recovered/Not Resolved]

NARRATIVE: CASE EVENT DATE: 2016
